FAERS Safety Report 18285728 (Version 3)
Quarter: 2021Q1

REPORT INFORMATION
  Report Type: Spontaneous
  Country: US (occurrence: US)
  Receive Date: 20200918
  Receipt Date: 20210105
  Transmission Date: 20210419
  Serious: No
  Sender: FDA-Public Use
  Company Number: US-SHIRE-US202030250

PATIENT
  Age: 12 Year
  Sex: Male
  Weight: 68 kg

DRUGS (21)
  1. CELEXA [CELECOXIB] [Concomitant]
     Active Substance: CELECOXIB
     Dosage: UNK
  2. METHYLPHENIDATE. [Concomitant]
     Active Substance: METHYLPHENIDATE
     Dosage: UNK
  3. IBUPROFEN. [Concomitant]
     Active Substance: IBUPROFEN
     Dosage: UNK
  4. SODIUM CHLORIDE. [Concomitant]
     Active Substance: SODIUM CHLORIDE
     Dosage: UNK
  5. EPINEPHRINE. [Concomitant]
     Active Substance: EPINEPHRINE
     Dosage: UNK
  6. IPRATROPIUM/ALBUTEROL [Concomitant]
     Active Substance: ALBUTEROL\IPRATROPIUM
     Dosage: UNK
  7. ATROVENT [Concomitant]
     Active Substance: IPRATROPIUM BROMIDE
     Dosage: UNK
  8. TYLENOL [Concomitant]
     Active Substance: ACETAMINOPHEN
     Dosage: UNK
  9. DIPHEN [DIPHENHYDRAMINE HYDROCHLORIDE] [Concomitant]
     Indication: FATIGUE
  10. ACETAMINOPHEN. [Concomitant]
     Active Substance: ACETAMINOPHEN
     Dosage: UNK
  11. HYDROCORTISONE. [Concomitant]
     Active Substance: HYDROCORTISONE
     Dosage: UNK
  12. ALBUTEROL [SALBUTAMOL] [Concomitant]
     Active Substance: ALBUTEROL
     Dosage: UNK
  13. QVAR [Concomitant]
     Active Substance: BECLOMETHASONE DIPROPIONATE
     Dosage: UNK
  14. DIPHENHYDRAMINE. [Concomitant]
     Active Substance: DIPHENHYDRAMINE
     Dosage: UNK
  15. LIDOCAIN [LIDOCAINE] [Concomitant]
     Active Substance: LIDOCAINE
     Dosage: UNK
  16. GAMMAGARD LIQUID [Suspect]
     Active Substance: HUMAN IMMUNOGLOBULIN G
     Indication: NEUTROPENIA
  17. DIPHEN [DIPHENHYDRAMINE HYDROCHLORIDE] [Concomitant]
     Indication: HEADACHE
     Dosage: UNK
  18. BENADRYL [Concomitant]
     Active Substance: DIPHENHYDRAMINE HYDROCHLORIDE
     Dosage: UNK
  19. GAMMAGARD LIQUID [Suspect]
     Active Substance: HUMAN IMMUNOGLOBULIN G
     Indication: IMMUNODEFICIENCY COMMON VARIABLE
     Dosage: 12 GRAM, EVERY 4 WK
     Route: 042
     Dates: start: 20180710
  20. LATANOPROST. [Concomitant]
     Active Substance: LATANOPROST
     Dosage: UNK
  21. VENTOLIN [Concomitant]
     Active Substance: ALBUTEROL SULFATE
     Dosage: UNK

REACTIONS (4)
  - Oropharyngeal pain [Unknown]
  - Fatigue [Unknown]
  - Headache [Unknown]
  - Oral surgery [Unknown]

NARRATIVE: CASE EVENT DATE: 20201119
